FAERS Safety Report 6795189-3 (Version None)
Quarter: 2010Q2

REPORT INFORMATION
  Report Type: 
  Country: None (occurrence: None)
  Receive Date: 20100625
  Receipt Date: 20100621
  Transmission Date: 20101027
  Serious: Yes (Hospitalization)
  Sender: FDA-Public Use
  Company Number: DE-ROCHE-711085

PATIENT
  Sex: Female
  Weight: 62 kg

DRUGS (6)
  1. BEVACIZUMAB [Suspect]
     Indication: BREAST CANCER
     Dosage: LAST DOSE PRIOR TO SAE 09 JUNE 2010, 5 CYCLE,FORM REPORTED AS IV
     Route: 065
     Dates: start: 20100317
  2. EPIRUBICIN [Suspect]
     Indication: BREAST CANCER
     Dosage: LAST DOSE PRIOR TO SAE 19 MAY 2010, 4 CYCLE,FORM REPORTED AS IV
     Route: 065
     Dates: start: 20100317
  3. CYCLOPHOSPHAMIDE [Suspect]
     Indication: BREAST CANCER
     Dosage: LAST DOSE PRIOR TO SAE 19 MAY 2010,CYCLE 4, FORM :IV
     Route: 065
     Dates: start: 20100317
  4. DOCETAXEL [Suspect]
     Indication: BREAST CANCER
     Dosage: LAST DOSE PRIOR TO SAE 09 JUNE 2010, 1 CYCLE,FORM :IV
     Route: 065
     Dates: start: 20100609
  5. DEXAMETHASONE [Concomitant]
     Dates: start: 20100610, end: 20100612
  6. DEXAMETHASONE [Concomitant]
     Dates: start: 20100612, end: 20100612

REACTIONS (2)
  - GENERAL PHYSICAL HEALTH DETERIORATION [None]
  - STOMATITIS [None]
